FAERS Safety Report 21667766 (Version 6)
Quarter: 2025Q1

REPORT INFORMATION
  Report Type: Spontaneous
  Country: US (occurrence: US)
  Receive Date: 20221201
  Receipt Date: 20250117
  Transmission Date: 20250408
  Serious: No
  Sender: PFIZER
  Company Number: US-PFIZER INC-2020066373

PATIENT
  Age: 73 Year
  Sex: Female

DRUGS (1)
  1. BOSULIF [Suspect]
     Active Substance: BOSUTINIB MONOHYDRATE
     Indication: Chronic myeloid leukaemia
     Dosage: 400 MG, DAILY (30-DAY SUPPLY)/TAKE ONE TABLET (400 MG) DAILY WITH FOOD
     Route: 048

REACTIONS (1)
  - Laryngitis [Unknown]
